FAERS Safety Report 13933126 (Version 2)
Quarter: 2017Q4

REPORT INFORMATION
  Report Type: Spontaneous
  Country: JP (occurrence: JP)
  Receive Date: 20170904
  Receipt Date: 20171005
  Transmission Date: 20180320
  Serious: Yes (Life-Threatening)
  Sender: FDA-Public Use
  Company Number: JP-JNJFOC-20170901209

PATIENT
  Age: 48 Year
  Sex: Female
  Weight: 58 kg

DRUGS (4)
  1. YONDELIS [Suspect]
     Active Substance: TRABECTEDIN
     Indication: MALIGNANT HAEMANGIOPERICYTOMA METASTATIC
     Dosage: 1.2 MG/M2
     Route: 042
     Dates: start: 20170810, end: 20170810
  2. SODIUM VALPROATE [Concomitant]
     Active Substance: VALPROATE SODIUM
     Indication: MALIGNANT HAEMANGIOPERICYTOMA METASTATIC
     Route: 048
     Dates: start: 20140109
  3. MECOBALAMIN [Concomitant]
     Active Substance: METHYLCOBALAMIN
     Indication: MALIGNANT HAEMANGIOPERICYTOMA METASTATIC
     Route: 048
     Dates: start: 20140109
  4. MYSTAN [Concomitant]
     Active Substance: CLOBAZAM
     Indication: MALIGNANT HAEMANGIOPERICYTOMA METASTATIC
     Route: 048
     Dates: start: 20140109

REACTIONS (2)
  - Acute respiratory distress syndrome [Recovered/Resolved]
  - Septic shock [Recovered/Resolved]

NARRATIVE: CASE EVENT DATE: 20170814
